FAERS Safety Report 6301438-8 (Version None)
Quarter: 2009Q3

REPORT INFORMATION
  Report Type: 
  Country: None (occurrence: None)
  Receive Date: 20090807
  Receipt Date: 20090728
  Transmission Date: 20100115
  Serious: Yes (Other)
  Sender: FDA-Public Use
  Company Number: US-TYCO HEALTHCARE/MALLINCKRODT-T200901430

PATIENT
  Age: 72 Year
  Sex: Male

DRUGS (2)
  1. SODIUM IODIDE I 131 [Suspect]
     Indication: HYPERTHYROIDISM
     Dosage: UNK
  2. LEVOTHYROXINE [Concomitant]
     Dosage: 25 UG, UNK

REACTIONS (1)
  - ENDOCRINE OPHTHALMOPATHY [None]
